FAERS Safety Report 10357770 (Version 1)
Quarter: 2014Q3

REPORT INFORMATION
  Report Type: Spontaneous
  Country: US (occurrence: None)
  Receive Date: 20140730
  Receipt Date: 20140730
  Transmission Date: 20150326
  Serious: No
  Sender: FDA-Public Use
  Company Number: 400162915

PATIENT
  Age: 89 Year
  Sex: Female

DRUGS (1)
  1. COSOPT PF [Suspect]
     Active Substance: DORZOLAMIDE HYDROCHLORIDE\TIMOLOL MALEATE
     Route: 047

REACTIONS (6)
  - Eye pain [None]
  - Feeling abnormal [None]
  - Unevaluable event [None]
  - Wrist fracture [None]
  - Eyelid ptosis [None]
  - Eye disorder [None]

NARRATIVE: CASE EVENT DATE: 201406
